FAERS Safety Report 19809330 (Version 2)
Quarter: 2024Q2

REPORT INFORMATION
  Report Type: Spontaneous
  Country: HU (occurrence: HU)
  Receive Date: 20210908
  Receipt Date: 20240419
  Transmission Date: 20240716
  Serious: Yes (Death)
  Sender: FDA-Public Use
  Company Number: HU-PFIZER INC-202101113718

PATIENT
  Age: 9 Decade
  Sex: Male

DRUGS (2)
  1. IBRANCE [Suspect]
     Active Substance: PALBOCICLIB
     Indication: Breast cancer
     Dosage: 125 MG, DAILY 3 WEEKS ON AND ONE WEEK OFF
  2. LETROZOLE [Concomitant]
     Active Substance: LETROZOLE
     Dosage: 1ST LINE

REACTIONS (3)
  - Cardiac disorder [Fatal]
  - Off label use [Unknown]
  - Product use issue [Unknown]
